FAERS Safety Report 8785057 (Version 1)
Quarter: 2012Q4

REPORT INFORMATION
  Report Type: Report from Study
  Country: IL (occurrence: IL)
  Receive Date: 20120914
  Receipt Date: 20120914
  Transmission Date: 20130627
  Serious: Yes (Hospitalization, Other)
  Sender: FDA-Public Use
  Company Number: IL-INCYTE CORPORATION-2012IN001712

PATIENT
  Age: 72 Year
  Sex: Female
  Weight: 75 kg

DRUGS (3)
  1. INC424 [Suspect]
     Indication: MYELOFIBROSIS
     Dosage: 20 mg, bid
     Dates: start: 20120531, end: 20120701
  2. NOVONORM [Concomitant]
     Dosage: UNK
     Dates: end: 20120701
  3. METFORMIN [Concomitant]
     Dosage: UNK
     Dates: end: 20120701

REACTIONS (3)
  - Gastroenteritis [Recovered/Resolved]
  - Pancytopenia [Recovered/Resolved]
  - Gastroenteritis [None]
